FAERS Safety Report 10586906 (Version 1)
Quarter: 2014Q4

REPORT INFORMATION
  Report Type: Spontaneous
  Country: US (occurrence: None)
  Receive Date: 20141114
  Receipt Date: 20141114
  Transmission Date: 20150529
  Serious: No
  Sender: FDA-Public Use
  Company Number: None

PATIENT
  Age: 48 Year
  Sex: Male

DRUGS (2)
  1. DORYX [Suspect]
     Active Substance: DOXYCYCLINE HYCLATE
     Indication: LYME DISEASE
     Dosage: 200MG. HALF IN AM AND PM
     Route: 048
     Dates: start: 20141107, end: 20141113
  2. DORYX [Suspect]
     Active Substance: DOXYCYCLINE HYCLATE
     Indication: ARTHROPOD BITE
     Dosage: 200MG. HALF IN AM AND PM
     Route: 048
     Dates: start: 20141107, end: 20141113

REACTIONS (1)
  - Contusion [None]

NARRATIVE: CASE EVENT DATE: 20141113
